FAERS Safety Report 17551338 (Version 1)
Quarter: 2020Q1

REPORT INFORMATION
  Report Type: Spontaneous
  Country: US (occurrence: US)
  Receive Date: 20200309
  Receipt Date: 20200309
  Transmission Date: 20200409
  Serious: Yes (Other)
  Sender: FDA-Public Use
  Company Number: None

PATIENT
  Age: 72 Year
  Sex: Female

DRUGS (14)
  1. FUROSEMIDE. [Concomitant]
     Active Substance: FUROSEMIDE
  2. NATURAL FIBER [Concomitant]
     Active Substance: PSYLLIUM HUSK
  3. VOLTAREN TOP GEL [Concomitant]
  4. ROXANOL [Concomitant]
     Active Substance: MORPHINE SULFATE
  5. WARFARIN [Concomitant]
     Active Substance: WARFARIN
  6. OPSUMIT [Suspect]
     Active Substance: MACITENTAN
     Indication: PULMONARY HYPERTENSION
     Route: 048
     Dates: start: 202001
  7. SERTRALINE [Concomitant]
     Active Substance: SERTRALINE HYDROCHLORIDE
  8. VITAMIN C [Concomitant]
     Active Substance: ASCORBIC ACID
  9. LEVOTHYROXINE. [Concomitant]
     Active Substance: LEVOTHYROXINE
  10. SPIRONOLACTONE. [Concomitant]
     Active Substance: SPIRONOLACTONE
  11. IPRATROPIUM INHL SOLN [Concomitant]
  12. LACTULOSE. [Concomitant]
     Active Substance: LACTULOSE
  13. SENNA [Concomitant]
     Active Substance: SENNA LEAF\SENNOSIDES\SENNOSIDES A AND B
  14. MVI [Concomitant]
     Active Substance: VITAMINS

REACTIONS (2)
  - Hyperaesthesia [None]
  - Arthralgia [None]

NARRATIVE: CASE EVENT DATE: 20200305
